FAERS Safety Report 17952105 (Version 1)
Quarter: 2020Q2

REPORT INFORMATION
  Report Type: Spontaneous
  Country: US (occurrence: US)
  Receive Date: 20200626
  Receipt Date: 20200626
  Transmission Date: 20200714
  Serious: Yes (Death, Other)
  Sender: FDA-Public Use
  Company Number: US-GILEAD-2020-0475740

PATIENT
  Age: 61 Year
  Sex: Male
  Weight: 106.4 kg

DRUGS (27)
  1. ATORVASTATIN [Concomitant]
     Active Substance: ATORVASTATIN
  2. CEFEPIME [Concomitant]
     Active Substance: CEFEPIME HYDROCHLORIDE
  3. FAMOTIDINE. [Concomitant]
     Active Substance: FAMOTIDINE
  4. LANTUS [Concomitant]
     Active Substance: INSULIN GLARGINE
  5. METOCLOPRAMIDE. [Concomitant]
     Active Substance: METOCLOPRAMIDE
  6. CLOPIDOGREL [Concomitant]
     Active Substance: CLOPIDOGREL BISULFATE
  7. DICYCLOMINE [DICYCLOVERINE HYDROCHLORIDE] [Concomitant]
  8. METOPROLOL TARTRATE. [Concomitant]
     Active Substance: METOPROLOL TARTRATE
  9. CEFTRIAXONE. [Concomitant]
     Active Substance: CEFTRIAXONE
  10. DEXAMETHASONE. [Concomitant]
     Active Substance: DEXAMETHASONE
  11. ACETAMINOPHEN. [Concomitant]
     Active Substance: ACETAMINOPHEN
  12. METOPROLOL. [Concomitant]
     Active Substance: METOPROLOL
  13. INSULIN [Concomitant]
     Active Substance: INSULIN NOS
  14. RANITIDINE. [Concomitant]
     Active Substance: RANITIDINE
  15. REMDESIVIR. [Suspect]
     Active Substance: REMDESIVIR
     Indication: COVID-19
     Dosage: 200 MG, ONCE
     Route: 042
     Dates: start: 20200616, end: 20200616
  16. PRECEDEX [Concomitant]
     Active Substance: DEXMEDETOMIDINE HYDROCHLORIDE
  17. EPOPROSTENOL. [Concomitant]
     Active Substance: EPOPROSTENOL
  18. REMDESIVIR. [Suspect]
     Active Substance: REMDESIVIR
     Dosage: 100 MG, QD
     Route: 042
     Dates: start: 20200617, end: 20200620
  19. AZITHROMYCIN ANHYDROUS. [Concomitant]
     Active Substance: AZITHROMYCIN ANHYDROUS
  20. ENOXAPARIN [Concomitant]
     Active Substance: ENOXAPARIN
  21. METFORMIN [Concomitant]
     Active Substance: METFORMIN HYDROCHLORIDE
  22. EPINEPHRINE. [Concomitant]
     Active Substance: EPINEPHRINE
  23. INSULIN LISPRO [Concomitant]
     Active Substance: INSULIN LISPRO
  24. NORMAL SALINE [Concomitant]
     Active Substance: SODIUM CHLORIDE
  25. TOCILIZUMAB. [Concomitant]
     Active Substance: TOCILIZUMAB
  26. ASPIRIN EC [Concomitant]
     Active Substance: ASPIRIN
  27. VITAMIN C [Concomitant]
     Active Substance: ASCORBIC ACID

REACTIONS (1)
  - Death [Fatal]

NARRATIVE: CASE EVENT DATE: 20200621
